FAERS Safety Report 9536435 (Version 1)
Quarter: 2013Q3

REPORT INFORMATION
  Report Type: Spontaneous
  Country: US (occurrence: None)
  Receive Date: 20130917
  Receipt Date: 20130917
  Transmission Date: 20140515
  Serious: Yes (Other)
  Sender: FDA-Public Use
  Company Number: None

PATIENT
  Age: 21 Year
  Sex: Female
  Weight: 76.66 kg

DRUGS (1)
  1. ADVIL [Suspect]
     Indication: HEADACHE
     Dates: start: 20130906, end: 20130912

REACTIONS (7)
  - Hypersensitivity [None]
  - Pruritus [None]
  - Blister [None]
  - Burning sensation [None]
  - Pain [None]
  - Musculoskeletal stiffness [None]
  - Abortion spontaneous [None]
